FAERS Safety Report 11220073 (Version 1)
Quarter: 2015Q2

REPORT INFORMATION
  Report Type: Spontaneous
  Country: FR (occurrence: FR)
  Receive Date: 20150625
  Receipt Date: 20150625
  Transmission Date: 20150821
  Serious: Yes (Congenital Anomaly)
  Sender: FDA-Public Use
  Company Number: FR-ABBVIE-15P-056-1415087-00

PATIENT
  Sex: Female

DRUGS (2)
  1. DEPAKINE CHRONO [Suspect]
     Active Substance: VALPROATE SODIUM
     Indication: EXPOSURE VIA BODY FLUID
     Route: 050
  2. DEPAKINE [Suspect]
     Active Substance: VALPROATE SODIUM
     Indication: EXPOSURE VIA BODY FLUID
     Route: 050

REACTIONS (3)
  - Foetal exposure during pregnancy [Unknown]
  - Cataract congenital [Not Recovered/Not Resolved]
  - Exposure via body fluid [Unknown]
